FAERS Safety Report 7449755-2 (Version None)
Quarter: 2011Q2

REPORT INFORMATION
  Report Type: 
  Country: None (occurrence: None)
  Receive Date: 20110502
  Receipt Date: 20110418
  Transmission Date: 20111010
  Serious: Yes (Other)
  Sender: FDA-Public Use
  Company Number: US-RANBAXY-2011US-43904

PATIENT
  Age: 78 Year
  Sex: Male

DRUGS (1)
  1. METFFORMIN HYDROCHLORIDE [Suspect]
     Indication: TYPE 2 DIABETES MELLITUS
     Dosage: 1 G, BID
     Route: 065

REACTIONS (2)
  - PARAESTHESIA [None]
  - HYPOAESTHESIA [None]
